FAERS Safety Report 14855254 (Version 1)
Quarter: 2018Q2

REPORT INFORMATION
  Report Type: Other
  Country: FR (occurrence: FR)
  Receive Date: 20180507
  Receipt Date: 20180507
  Transmission Date: 20180711
  Serious: Yes (Hospitalization)
  Sender: FDA-Public Use
  Company Number: FR-VALIDUS PHARMACEUTICALS LLC-FR-2018VAL000731

PATIENT
  Age: 76 Year
  Sex: Male

DRUGS (3)
  1. FUROSEMIDE. [Suspect]
     Active Substance: FUROSEMIDE
     Indication: LUNG DISORDER
     Dosage: UNK
     Route: 041
     Dates: start: 20180212, end: 20180219
  2. OFLOCET                            /00731801/ [Suspect]
     Active Substance: OFLOXACIN
     Indication: LUNG DISORDER
     Dosage: 400 MG, UNK
     Route: 041
     Dates: start: 20180215, end: 201803
  3. MABELIO [Suspect]
     Active Substance: CEFTOBIPROLE
     Indication: LUNG DISORDER
     Dosage: 1500 MG, QD
     Route: 041
     Dates: start: 20180215, end: 201803

REACTIONS (2)
  - Renal tubular disorder [Recovered/Resolved]
  - Hyponatraemia [Recovered/Resolved]

NARRATIVE: CASE EVENT DATE: 201802
